FAERS Safety Report 8198655-1 (Version None)
Quarter: 2012Q1

REPORT INFORMATION
  Report Type: 
  Country: None (occurrence: None)
  Receive Date: 20120309
  Receipt Date: 20120201
  Transmission Date: 20120608
  Serious: No
  Sender: FDA-Public Use
  Company Number: US-AMGEN-USASP2012006783

PATIENT
  Age: 77 Year
  Sex: Female

DRUGS (5)
  1. PROLIA [Suspect]
     Indication: OSTEOPOROSIS POSTMENOPAUSAL
     Dosage: 60 MG, Q6MO
     Dates: start: 20120103
  2. PREDNISONE QUALIMED [Concomitant]
  3. SIMVASTATIN [Concomitant]
  4. CALCIUM [Concomitant]
  5. VITAMIN D [Concomitant]

REACTIONS (4)
  - FATIGUE [None]
  - BACK PAIN [None]
  - PAIN IN EXTREMITY [None]
  - MUSCULOSKELETAL PAIN [None]
